FAERS Safety Report 11058558 (Version 1)
Quarter: 2015Q2

REPORT INFORMATION
  Report Type: Report from Study
  Country: US (occurrence: None)
  Receive Date: 20150420
  Receipt Date: 20150420
  Transmission Date: 20150821
  Serious: No
  Sender: FDA-Public Use
  Company Number: AEGR001078

PATIENT
  Age: 51 Year
  Sex: Male
  Weight: 90.7 kg

DRUGS (1)
  1. JUXTAPID [Suspect]
     Active Substance: LOMITAPIDE MESYLATE
     Indication: TYPE IIA HYPERLIPIDAEMIA
     Route: 048
     Dates: start: 201302, end: 20140623

REACTIONS (3)
  - Nausea [None]
  - Discomfort [None]
  - Diarrhoea [None]

NARRATIVE: CASE EVENT DATE: 20150105
